FAERS Safety Report 4370912-6 (Version None)
Quarter: 2004Q2

REPORT INFORMATION
  Report Type: 
  Country: None (occurrence: None)
  Receive Date: 20040601
  Receipt Date: 20040519
  Transmission Date: 20050107
  Serious: Yes (Death, Hospitalization)
  Sender: FDA-Public Use
  Company Number: JP-JNJFOC-20040505529

PATIENT
  Age: 82 Year
  Sex: Female

DRUGS (1)
  1. LEVOFLOXACIN [Suspect]
     Indication: DRUG USE FOR UNKNOWN INDICATION
     Dosage: ORAL
     Route: 048
     Dates: start: 20031121

REACTIONS (9)
  - C-REACTIVE PROTEIN INCREASED [None]
  - COUGH [None]
  - DECREASED APPETITE [None]
  - DIARRHOEA [None]
  - GASTROINTESTINAL AMYLOIDOSIS [None]
  - HAEMATOCHEZIA [None]
  - PYREXIA [None]
  - WEIGHT DECREASED [None]
  - WHITE BLOOD CELL COUNT INCREASED [None]
